FAERS Safety Report 11038849 (Version 1)
Quarter: 2015Q2

REPORT INFORMATION
  Report Type: Spontaneous
  Country: US (occurrence: US)
  Receive Date: 20150416
  Receipt Date: 20150416
  Transmission Date: 20150821
  Serious: No
  Sender: FDA-Public Use
  Company Number: US-ASTRAZENECA-2014SE76582

PATIENT
  Sex: Male
  Weight: 108.4 kg

DRUGS (6)
  1. BYDUREON [Suspect]
     Active Substance: EXENATIDE
     Indication: DIABETES MELLITUS
     Dosage: 4 COUNT VIAL, 2 MG, ONCE A WEEK
     Route: 058
     Dates: start: 201312
  2. HYDRAZINE [Concomitant]
     Active Substance: HYDRAZINE SULFATE
  3. TOPROL XL [Suspect]
     Active Substance: METOPROLOL SUCCINATE
     Route: 048
  4. BYDUREON [Suspect]
     Active Substance: EXENATIDE
     Indication: DIABETES MELLITUS
     Route: 058
     Dates: start: 2014
  5. METFORMIN HCL [Concomitant]
     Active Substance: METFORMIN HYDROCHLORIDE
     Indication: DIABETES MELLITUS
  6. LOSARTAN [Concomitant]
     Active Substance: LOSARTAN

REACTIONS (2)
  - Injection site haemorrhage [Unknown]
  - Drug administration error [Recovered/Resolved]

NARRATIVE: CASE EVENT DATE: 2014
